FAERS Safety Report 8006185-2 (Version None)
Quarter: 2011Q4

REPORT INFORMATION
  Report Type: 
  Country: None (occurrence: None)
  Receive Date: 20111226
  Receipt Date: 20111219
  Transmission Date: 20120403
  Serious: Yes (Hospitalization)
  Sender: FDA-Public Use
  Company Number: US-AMGEN-USASP2011067580

PATIENT
  Age: 70 Year
  Sex: Female

DRUGS (2)
  1. ENBREL [Suspect]
     Indication: RHEUMATOID ARTHRITIS
     Dosage: 50 MG, QWK
     Dates: start: 19980101
  2. TREXALL [Concomitant]
     Dosage: UNK UNK, QWK

REACTIONS (13)
  - INJECTION SITE PAIN [None]
  - KNEE OPERATION [None]
  - BALANCE DISORDER [None]
  - INJECTION SITE HAEMATOMA [None]
  - INJECTION SITE DISCOLOURATION [None]
  - RHEUMATOID ARTHRITIS [None]
  - FOOD POISONING [None]
  - OSTEOARTHRITIS [None]
  - THERAPEUTIC RESPONSE DECREASED [None]
  - FALL [None]
  - DRUG INEFFECTIVE [None]
  - INJECTION SITE HAEMORRHAGE [None]
  - WRIST FRACTURE [None]
